FAERS Safety Report 26078040 (Version 3)
Quarter: 2025Q4

REPORT INFORMATION
  Report Type: Spontaneous
  Country: CA (occurrence: CA)
  Receive Date: 20251122
  Receipt Date: 20251217
  Transmission Date: 20260118
  Serious: Yes (Hospitalization, Other)
  Sender: CELLTRION
  Company Number: CA-PFIZER INC-202300401369

PATIENT

DRUGS (21)
  1. INFLECTRA [Suspect]
     Active Substance: INFLIXIMAB-DYYB
     Indication: Crohn^s disease
     Dosage: 400 MG, AT EVERY 0,2,6 WEEKS, THEN EVERY 8 WEEKS
     Route: 042
     Dates: start: 20231012
  2. INFLECTRA [Suspect]
     Active Substance: INFLIXIMAB-DYYB
     Dosage: 400 MG, 0,2,6 WEEKS, THEN EVERY 8 WEEKS
     Route: 042
     Dates: start: 20231024
  3. INFLECTRA [Suspect]
     Active Substance: INFLIXIMAB-DYYB
     Dosage: 400 MG, 0,2,6 WEEKS, THEN EVERY 8 WEEKS (WEEK 6)
     Route: 042
     Dates: start: 20231122
  4. INFLECTRA [Suspect]
     Active Substance: INFLIXIMAB-DYYB
     Dosage: 400 MG, 0,2,6 WEEKS, THEN EVERY 8 WEEKS
     Route: 042
     Dates: start: 20240313
  5. INFLECTRA [Suspect]
     Active Substance: INFLIXIMAB-DYYB
     Dosage: 400 MG, 0,2,6 WEEKS, THEN EVERY 8 WEEKS (DOSAGE ADMINISTERED: 400 MG, 8 WEEKS)
     Route: 042
     Dates: start: 20240508, end: 20240508
  6. INFLECTRA [Suspect]
     Active Substance: INFLIXIMAB-DYYB
     Dosage: 400 MG (5MG/KG), EVERY 4 WEEKS  (ROUND UP TO NEAREST 100 MG INCREMENT)
     Route: 042
     Dates: start: 20240606
  7. INFLECTRA [Suspect]
     Active Substance: INFLIXIMAB-DYYB
     Dosage: 400 MG (5MG/KG), EVERY 4 WEEKS (ROUND UP TO NEAREST 100MG INCREMENT)
     Route: 042
     Dates: start: 20240703
  8. INFLECTRA [Suspect]
     Active Substance: INFLIXIMAB-DYYB
     Dosage: 444 MG (5MG/KG) , EVERY 4 WEEKS (ROUND UP TO NEAREST 100MG INCREMENT)
     Route: 042
     Dates: start: 20240731
  9. INFLECTRA [Suspect]
     Active Substance: INFLIXIMAB-DYYB
     Dosage: 453 MG (5MG/KG), EVERY 4 WEEKS (ROUND UP TO NEAREST 100MG INCREMENT)
     Route: 042
     Dates: start: 20240829
  10. INFLECTRA [Suspect]
     Active Substance: INFLIXIMAB-DYYB
     Dosage: 458 MG (5MG/KG), EVERY 4 WEEKS (ROUND UP TO NEAREST 100MG INCREMENT)
     Route: 042
     Dates: start: 20240924
  11. INFLECTRA [Suspect]
     Active Substance: INFLIXIMAB-DYYB
     Dosage: 466 MG (5MG/KG), EVERY 4 WEEKS (ROUND UP TO NEAREST 100MG INCREMENT)
     Route: 042
     Dates: start: 20241022
  12. INFLECTRA [Suspect]
     Active Substance: INFLIXIMAB-DYYB
     Dosage: 468 MG, 4 WEEKS
     Route: 042
     Dates: start: 20241119
  13. INFLECTRA [Suspect]
     Active Substance: INFLIXIMAB-DYYB
     Dosage: 468 MG, EVERY 4 WEEKS
     Route: 042
     Dates: start: 20241217
  14. INFLECTRA [Suspect]
     Active Substance: INFLIXIMAB-DYYB
     Dosage: 480MG AFTER 4 WEEKS
     Route: 042
     Dates: start: 20250115
  15. INFLECTRA [Suspect]
     Active Substance: INFLIXIMAB-DYYB
     Dosage: 471 MG EVERY 4 WEEKS
     Route: 042
     Dates: start: 20250211
  16. INFLECTRA [Suspect]
     Active Substance: INFLIXIMAB-DYYB
     Dosage: 5 MG/KG, EVERY 4 WEEKS
     Route: 042
     Dates: start: 20250311
  17. INFLECTRA [Suspect]
     Active Substance: INFLIXIMAB-DYYB
     Dosage: 463MG AFTER 3 WEEKS AND 6 DAYS
     Route: 042
     Dates: start: 20250408
  18. INFLECTRA [Suspect]
     Active Substance: INFLIXIMAB-DYYB
     Dosage: 481 MG 4 WEEKS
     Route: 042
     Dates: start: 20250506
  19. INFLECTRA [Suspect]
     Active Substance: INFLIXIMAB-DYYB
     Dosage: 5 MG/KG, Q4WEEKS
     Dates: end: 20250506
  20. IXIFI [Suspect]
     Active Substance: INFLIXIMAB-QBTX
     Indication: Crohn^s disease
     Dosage: 5 MG/KG, EVERY 4 WEEKS
     Route: 042
     Dates: start: 20250603
  21. IXIFI [Suspect]
     Active Substance: INFLIXIMAB-QBTX
     Dosage: UNK
     Dates: start: 20251015

REACTIONS (7)
  - Caesarean section [Unknown]
  - Condition aggravated [Recovering/Resolving]
  - Wound infection [Recovering/Resolving]
  - Arthralgia [Recovered/Resolved]
  - Maternal exposure during pregnancy [Unknown]
  - Off label use [Unknown]
  - Off label use [Unknown]

NARRATIVE: CASE EVENT DATE: 20231122
